FAERS Safety Report 17380524 (Version 3)
Quarter: 2020Q1

REPORT INFORMATION
  Report Type: Spontaneous
  Country: RO (occurrence: RO)
  Receive Date: 20200206
  Receipt Date: 20200214
  Transmission Date: 20200409
  Serious: Yes (Hospitalization, Other)
  Sender: FDA-Public Use
  Company Number: NVSC2020RO030442

PATIENT
  Age: 50 Year
  Sex: Male

DRUGS (1)
  1. QUETIAPINE. [Suspect]
     Active Substance: QUETIAPINE
     Indication: MOOD DISORDER DUE TO A GENERAL MEDICAL CONDITION
     Dosage: FOR THE LAST 4 MONTHS
     Route: 065

REACTIONS (8)
  - Peripheral swelling [Unknown]
  - Pelvic venous thrombosis [Unknown]
  - Thrombophlebitis superficial [Unknown]
  - Off label use [Unknown]
  - Renal vein thrombosis [Unknown]
  - Deep vein thrombosis [Unknown]
  - Vena cava thrombosis [Unknown]
  - Pain in extremity [Unknown]
